FAERS Safety Report 7716561-0 (Version None)
Quarter: 2011Q3

REPORT INFORMATION
  Report Type: 
  Country: None (occurrence: None)
  Receive Date: 20110829
  Receipt Date: 20110822
  Transmission Date: 20111222
  Serious: Yes (Death, Life-Threatening, Hospitalization)
  Sender: FDA-Public Use
  Company Number: US-CELGENEUS-163-AB007-11051666

PATIENT
  Sex: Female
  Weight: 76 kg

DRUGS (12)
  1. ABRAXANE [Suspect]
     Indication: ADENOCARCINOMA PANCREAS
     Dosage: 125 MILLIGRAM/SQ. METER
     Route: 041
     Dates: start: 20110211, end: 20110429
  2. TYLENOL-500 [Concomitant]
     Indication: PAIN
  3. MULTI-VITAMINS [Concomitant]
     Indication: SUPPLEMENTATION THERAPY
     Route: 048
     Dates: start: 20030101
  4. FENTANYL [Concomitant]
     Indication: BACK PAIN
     Route: 065
     Dates: start: 20110201
  5. GEMCITABINE [Suspect]
     Indication: ADENOCARCINOMA PANCREAS
     Dosage: 1000 MILLIGRAM/SQ. METER
  6. IMODIUM [Concomitant]
     Route: 048
     Dates: start: 20110224, end: 20110224
  7. TYLENOL-500 [Concomitant]
     Indication: HEADACHE
     Route: 048
     Dates: start: 20110224, end: 20110224
  8. NAPROSYN [Concomitant]
     Indication: BACK PAIN
     Route: 048
     Dates: start: 20101201
  9. PRILOSEC [Concomitant]
     Route: 048
     Dates: start: 20110105
  10. PROCHLORPERAZINE MALEATE [Concomitant]
     Indication: NAUSEA
     Route: 048
     Dates: start: 20110204
  11. IMODIUM [Concomitant]
     Indication: PAIN
  12. ATIVAN [Concomitant]
     Indication: ANXIETY
     Route: 048
     Dates: start: 20110101

REACTIONS (3)
  - DELIRIUM [None]
  - GENERAL PHYSICAL HEALTH DETERIORATION [None]
  - PNEUMONITIS [None]
